FAERS Safety Report 4687019-0 (Version None)
Quarter: 2005Q2

REPORT INFORMATION
  Report Type: 
  Country: None (occurrence: None)
  Receive Date: 20050608
  Receipt Date: 20050523
  Transmission Date: 20051028
  Serious: Yes (Hospitalization, Other)
  Sender: FDA-Public Use
  Company Number: 2005079754

PATIENT
  Sex: Female

DRUGS (10)
  1. NARDIL [Suspect]
     Indication: DEPRESSION
     Dosage: ORAL
     Route: 048
  2. ARICEPT [Suspect]
     Indication: DEMENTIA
     Dosage: ORAL
     Route: 048
  3. KLONOPIN [Suspect]
     Indication: ILL-DEFINED DISORDER
     Dosage: ORAL
     Route: 048
  4. ALBUTEROL [Suspect]
     Indication: ILL-DEFINED DISORDER
     Dosage: INHALATION
     Route: 055
  5. ALL OTHER THERAPEUTIC PRODUCTS (ALL OTHER THERAPEUTIC PRODUCTS) [Suspect]
     Indication: ILL-DEFINED DISORDER
     Dosage: ML
  6. ABILIFY [Concomitant]
  7. LASIX [Concomitant]
  8. OMEGA 3 (FISH OIL) [Concomitant]
  9. KLOR-CON [Concomitant]
  10. ALL OTHER THERAPEUTIC PRODUCTS (ALL OTHER THERAPEUTIC PRODUCTS) [Concomitant]

REACTIONS (16)
  - ANXIETY [None]
  - CHOKING SENSATION [None]
  - CONDITION AGGRAVATED [None]
  - DEMENTIA [None]
  - DEPRESSION [None]
  - DIZZINESS [None]
  - DRUG INEFFECTIVE [None]
  - FEELING ABNORMAL [None]
  - HYPERTENSION [None]
  - MENTAL DISORDER [None]
  - OSTEOPOROSIS [None]
  - OVERDOSE [None]
  - PRESCRIBED OVERDOSE [None]
  - SOMNOLENCE [None]
  - SPINAL OPERATION [None]
  - WEIGHT INCREASED [None]
